FAERS Safety Report 4281123-7 (Version None)
Quarter: 2004Q1

REPORT INFORMATION
  Report Type: 
  Country: None (occurrence: None)
  Receive Date: 20040105
  Receipt Date: 20031017
  Transmission Date: 20041129
  Serious: No
  Sender: FDA-Public Use
  Company Number: SU-2003-001857

PATIENT
  Age: 39 Year
  Sex: Female
  Weight: 113.8529 kg

DRUGS (2)
  1. BENICAR HCT [Suspect]
     Indication: HYPERTENSION
     Dosage: 20.125 MG QD PO
     Dates: start: 20030904, end: 20031014
  2. ZOCOR [Suspect]
     Dosage: 20 MG QD PO
     Dates: start: 20030904

REACTIONS (2)
  - DEPRESSION [None]
  - HEADACHE [None]
